APPROVED DRUG PRODUCT: METFORMIN HYDROCHLORIDE
Active Ingredient: METFORMIN HYDROCHLORIDE
Strength: 500MG
Dosage Form/Route: TABLET;ORAL
Application: A075984 | Product #001
Applicant: APOTEX INC
Approved: Apr 23, 2002 | RLD: No | RS: No | Type: DISCN